FAERS Safety Report 8529824-6 (Version None)
Quarter: 2012Q3

REPORT INFORMATION
  Report Type: 
  Country: None (occurrence: None)
  Receive Date: 20120723
  Receipt Date: 20120716
  Transmission Date: 20120928
  Serious: Yes (Death)
  Sender: FDA-Public Use
  Company Number: BE-ASTELLAS-2012US006096

PATIENT
  Sex: Female

DRUGS (3)
  1. TARCEVA [Suspect]
     Indication: PRODUCT USED FOR UNKNOWN INDICATION
     Dosage: 150 MG, UNKNOWN/D
     Route: 048
  2. TARCEVA [Suspect]
     Dosage: 450 MG, UID/QD
     Route: 048
     Dates: end: 20120705
  3. COUMADIN [Concomitant]
     Indication: PRODUCT USED FOR UNKNOWN INDICATION
     Dosage: UNK
     Route: 065

REACTIONS (4)
  - DEATH [None]
  - THROMBOSIS [None]
  - OVERDOSE [None]
  - DEHYDRATION [None]
